APPROVED DRUG PRODUCT: METHOCARBAMOL
Active Ingredient: METHOCARBAMOL
Strength: 500MG
Dosage Form/Route: TABLET;ORAL
Application: A084756 | Product #002
Applicant: CHARTWELL MOLECULAR HOLDINGS LLC
Approved: Mar 31, 2003 | RLD: No | RS: No | Type: DISCN